FAERS Safety Report 7953717-6 (Version None)
Quarter: 2011Q4

REPORT INFORMATION
  Report Type: 
  Country: None (occurrence: None)
  Receive Date: 20111129
  Receipt Date: 20111111
  Transmission Date: 20120403
  Serious: Yes (Hospitalization)
  Sender: FDA-Public Use
  Company Number: 2011SP050176

PATIENT
  Age: 65 Year
  Sex: Male

DRUGS (17)
  1. TAMSULOSIN HCL [Concomitant]
  2. GLUCOSAMINE [Concomitant]
  3. ESOMEPRAZOLE MAGNESIUM [Concomitant]
  4. FISH OIL [Concomitant]
  5. MULTI-VITAMIN [Concomitant]
  6. VITAMIN B COMPLEX CAP [Concomitant]
  7. LEVETIRACETAM [Concomitant]
  8. TEMODAR [Suspect]
     Indication: GLIOBLASTOMA MULTIFORME
     Dosage: 140;310 MG, QD, IV
     Route: 042
     Dates: start: 20110823, end: 20110827
  9. TEMODAR [Suspect]
     Indication: GLIOBLASTOMA MULTIFORME
     Dosage: 140;310 MG, QD, IV
     Route: 042
     Dates: start: 20111027, end: 20111031
  10. TEMODAR [Suspect]
     Indication: GLIOBLASTOMA MULTIFORME
     Dosage: 140;310 MG, QD, IV
     Route: 042
     Dates: start: 20110606, end: 20110718
  11. ATORVASTATIN CALCIUM [Concomitant]
  12. ASCORBIC ACID [Concomitant]
  13. HYDROCODONE BITARTRATE [Concomitant]
  14. HYDROXIZINE [Concomitant]
  15. SULFAMETHOXAZOLE AND TRIMETHOPRIM [Concomitant]
  16. ASCORBIC ACID [Concomitant]
  17. ACETAMINOPHEN [Concomitant]

REACTIONS (5)
  - PULMONARY EMBOLISM [None]
  - SYNCOPE [None]
  - INTERNATIONAL NORMALISED RATIO INCREASED [None]
  - HEAD INJURY [None]
  - FALL [None]
